FAERS Safety Report 20031133 (Version 4)
Quarter: 2022Q1

REPORT INFORMATION
  Report Type: Report from Study
  Country: FR (occurrence: FR)
  Receive Date: 20211103
  Receipt Date: 20220121
  Transmission Date: 20220423
  Serious: Yes (Hospitalization)
  Sender: FDA-Public Use
  Company Number: FR-PFIZER INC-202101461668

PATIENT
  Age: 51 Year
  Sex: Male
  Weight: 92 kg

DRUGS (16)
  1. PF-06863135 [Suspect]
     Active Substance: PF-06863135
     Indication: Plasma cell myeloma
     Dosage: 12 MG, ONCE
     Route: 058
     Dates: start: 20211018, end: 20211018
  2. PF-06863135 [Suspect]
     Active Substance: PF-06863135
     Dosage: 32 MG, ONCE
     Route: 058
     Dates: start: 20211021, end: 20211021
  3. PIPERACILLIN AND TAZOBACTAM [Concomitant]
     Active Substance: PIPERACILLIN SODIUM\TAZOBACTAM SODIUM
     Dosage: 4 G, Q6H
     Route: 042
     Dates: start: 20211021, end: 202110
  4. ARANESP [Concomitant]
     Active Substance: DARBEPOETIN ALFA
     Dosage: 150 UG, WEEKLY
     Route: 058
     Dates: start: 202106, end: 202112
  5. ESOMEPRAZOLE [Concomitant]
     Active Substance: ESOMEPRAZOLE
     Dosage: 20 MG, Q24H
     Route: 048
     Dates: start: 201609
  6. BACTRIM [Concomitant]
     Active Substance: SULFAMETHOXAZOLE\TRIMETHOPRIM
     Dosage: 400 MG, Q24H
     Route: 048
     Dates: start: 2016
  7. AMOXICILLIN [Concomitant]
     Active Substance: AMOXICILLIN
     Dosage: 500 MG, Q12H
     Route: 048
     Dates: start: 2016
  8. FOLIC ACID [Concomitant]
     Active Substance: FOLIC ACID
     Dosage: 5 MG, Q12H
     Route: 048
     Dates: start: 20211014
  9. CYANOCOBALAMIN [Concomitant]
     Active Substance: CYANOCOBALAMIN
     Dosage: 1 MG, Q24H
     Route: 048
     Dates: start: 202110, end: 20211124
  10. VALACYCLOVIR HYDROCHLORIDE [Concomitant]
     Active Substance: VALACYCLOVIR HYDROCHLORIDE
     Dosage: 500 MG, Q24H
     Route: 048
     Dates: start: 2016
  11. DEXAMETHASONE [Concomitant]
     Active Substance: DEXAMETHASONE
     Indication: Plasma cell myeloma
     Dosage: 20.0 MG, ONCE
     Route: 048
     Dates: start: 20211018, end: 20211018
  12. DEXAMETHASONE [Concomitant]
     Active Substance: DEXAMETHASONE
     Dosage: 20.0 MG, ONCE
     Route: 048
     Dates: start: 20211021, end: 20211021
  13. POLARAMINE [Concomitant]
     Active Substance: DEXCHLORPHENIRAMINE MALEATE
     Indication: Plasma cell myeloma
     Dosage: 5.0 MG, ONCE
     Route: 042
     Dates: start: 20211018, end: 20211018
  14. POLARAMINE [Concomitant]
     Active Substance: DEXCHLORPHENIRAMINE MALEATE
     Dosage: 5.0 MG, ONCE
     Route: 042
     Dates: start: 20211021, end: 20211021
  15. ACETAMINOPHEN [Concomitant]
     Active Substance: ACETAMINOPHEN
     Indication: Plasma cell myeloma
     Dosage: 1000.0 MG, ONCE
     Route: 048
     Dates: start: 20211018, end: 20211018
  16. ACETAMINOPHEN [Concomitant]
     Active Substance: ACETAMINOPHEN
     Dosage: 1000.0 MG, ONCE
     Route: 048
     Dates: start: 20211021, end: 20211021

REACTIONS (1)
  - Acute kidney injury [Recovered/Resolved]

NARRATIVE: CASE EVENT DATE: 20211025
